FAERS Safety Report 23569856 (Version 5)
Quarter: 2025Q4

REPORT INFORMATION
  Report Type: Spontaneous
  Country: GB (occurrence: GB)
  Receive Date: 20240227
  Receipt Date: 20251204
  Transmission Date: 20260117
  Serious: Yes (Hospitalization, Other)
  Sender: TEVA
  Company Number: GB-MYLANLABS-2023M1078418

PATIENT
  Age: 38 Year
  Sex: Male

DRUGS (105)
  1. HALOPERIDOL [Suspect]
     Active Substance: HALOPERIDOL
     Indication: Product used for unknown indication
     Dosage: UNK
     Route: 065
  2. HALOPERIDOL [Suspect]
     Active Substance: HALOPERIDOL
     Indication: Product used for unknown indication
     Dosage: UNK,
     Route: 065
     Dates: start: 20230401
  3. LORAZEPAM [Suspect]
     Active Substance: LORAZEPAM
     Indication: Product used for unknown indication
     Dosage: ( (PO/IM) 1-2MG (MAX 4MG IN 24 HOURS),
     Route: 065
     Dates: start: 201509
  4. RISPERIDONE [Suspect]
     Active Substance: RISPERIDONE
     Indication: Product used for unknown indication
     Dosage: UNK
     Route: 065
     Dates: start: 200210
  5. RISPERIDONE [Suspect]
     Active Substance: RISPERIDONE
     Indication: Product used for unknown indication
     Dosage: UNK,
     Route: 065
     Dates: start: 201302
  6. RISPERIDONE [Suspect]
     Active Substance: RISPERIDONE
     Indication: Product used for unknown indication
     Dosage: UNK
     Route: 065
     Dates: start: 201302
  7. CHOLECALCIFEROL [Concomitant]
     Active Substance: CHOLECALCIFEROL
     Indication: Product used for unknown indication
  8. VALPROATE SODIUM [Suspect]
     Active Substance: VALPROATE SODIUM
     Indication: Product used for unknown indication
     Route: 065
     Dates: start: 201606
  9. VALPROATE SODIUM [Suspect]
     Active Substance: VALPROATE SODIUM
     Indication: Product used for unknown indication
     Route: 065
     Dates: start: 201605
  10. VALPROATE SODIUM [Suspect]
     Active Substance: VALPROATE SODIUM
     Indication: Product used for unknown indication
     Route: 065
     Dates: start: 201607
  11. VALPROATE SODIUM [Suspect]
     Active Substance: VALPROATE SODIUM
     Indication: Product used for unknown indication
     Route: 065
     Dates: start: 202303, end: 202305
  12. FLEXITOL HEEL [Concomitant]
     Indication: Product used for unknown indication
     Dosage: BALM
  13. FOLIC ACID\IRON\MINERALS\VITAMINS [Concomitant]
     Active Substance: FOLIC ACID\IRON\MINERALS\VITAMINS
     Indication: Product used for unknown indication
  14. LACTULOSE [Concomitant]
     Active Substance: LACTULOSE
     Indication: Product used for unknown indication
     Dosage: 15 MILLILITER (MAX THREE TIMES DAILY)
  15. ACETAMINOPHEN [Concomitant]
     Active Substance: ACETAMINOPHEN
     Indication: Product used for unknown indication
     Dosage: 1 GRAM (MAX 4G IN 24 HOURS)
  16. PROCYCLIDINE [Concomitant]
     Active Substance: PROCYCLIDINE
     Indication: Product used for unknown indication
     Dosage: (MAX 10MG IN 24 HOURS)
  17. ASCORBIC ACID\VITAMIN B COMPLEX [Concomitant]
     Active Substance: ASCORBIC ACID\VITAMIN B COMPLEX
     Indication: Product used for unknown indication
  18. PROMETHAZINE [Concomitant]
     Active Substance: PROMETHAZINE HYDROCHLORIDE
     Indication: Product used for unknown indication
     Dosage: (MAX 100MG IN 25 HOURS)
  19. THIAMINE [Concomitant]
     Active Substance: THIAMINE
     Indication: Product used for unknown indication
  20. HALDOL [Suspect]
     Active Substance: HALOPERIDOL
     Indication: Product used for unknown indication
     Route: 065
  21. AMISULPRIDE [Suspect]
     Active Substance: AMISULPRIDE
     Indication: Affective disorder
     Dosage: 100 MG MORNING 400 MG EVENING
     Route: 065
     Dates: start: 201607
  22. AMISULPRIDE [Suspect]
     Active Substance: AMISULPRIDE
     Indication: Affective disorder
     Dosage: 50 MG, BID
     Route: 065
     Dates: start: 201406, end: 201503
  23. AMISULPRIDE [Suspect]
     Active Substance: AMISULPRIDE
     Indication: Affective disorder
     Route: 065
     Dates: start: 200307
  24. AMISULPRIDE [Suspect]
     Active Substance: AMISULPRIDE
     Indication: Affective disorder
     Dosage: 100MG IN THE MORNING, 400MG AT NIGHT, THERAPY END DATE: NOT ASKED
     Route: 065
     Dates: start: 201607
  25. AMISULPRIDE [Suspect]
     Active Substance: AMISULPRIDE
     Indication: Affective disorder
     Dosage: 200 MG, QD
     Route: 065
     Dates: start: 200301
  26. AMISULPRIDE [Suspect]
     Active Substance: AMISULPRIDE
     Indication: Affective disorder
     Dosage: 50 MG, BID
     Route: 065
     Dates: start: 2013
  27. AMISULPRIDE [Suspect]
     Active Substance: AMISULPRIDE
     Indication: Affective disorder
     Dosage: UNK UNK, QD
     Route: 065
     Dates: start: 2004
  28. AMISULPRIDE [Suspect]
     Active Substance: AMISULPRIDE
     Indication: Affective disorder
     Dosage: 200MG TWICE DAILY, 600MG AT NIGHT
     Route: 065
     Dates: start: 201605
  29. AMISULPRIDE [Suspect]
     Active Substance: AMISULPRIDE
     Indication: Affective disorder
     Dosage: 50 MILLIGRAM, BID (50MG TWICE DAILY START DATE: JUL-2014)
     Route: 065
     Dates: start: 201407, end: 201503
  30. AMISULPRIDE [Suspect]
     Active Substance: AMISULPRIDE
     Indication: Affective disorder
     Dosage: DAILY (START DATE: NOV-2004)
     Route: 065
     Dates: start: 200411
  31. AMISULPRIDE [Suspect]
     Active Substance: AMISULPRIDE
     Indication: Affective disorder
     Dosage: 200MG TWICE DAILY, 600MG AT NIGHT START DATE: MAY-2016; ;
     Route: 065
     Dates: start: 201605
  32. AMISULPRIDE [Suspect]
     Active Substance: AMISULPRIDE
     Indication: Affective disorder
     Dosage: 100 MILLIGRAM, QD (100MG DAILY START DATE: JUL-2004)
     Route: 065
     Dates: start: 200407
  33. AMISULPRIDE [Suspect]
     Active Substance: AMISULPRIDE
     Indication: Affective disorder
     Dosage: UNKNOWN DOSE IN THE MORNING, 100MG IN THE EVENING START DATE: NOV-2003
     Route: 065
     Dates: start: 200311
  34. AMISULPRIDE [Suspect]
     Active Substance: AMISULPRIDE
     Indication: Affective disorder
     Dosage: 200MG TWICE DAILY, 600MG AT NIGHT
     Route: 065
     Dates: start: 201605
  35. AMISULPRIDE [Suspect]
     Active Substance: AMISULPRIDE
     Indication: Affective disorder
     Dosage: 50 MILLIGRAM, BID (50MG TWICE DAILY START DATE: JUL-2014)
     Route: 065
     Dates: start: 201407, end: 201503
  36. AMISULPRIDE [Suspect]
     Active Substance: AMISULPRIDE
     Indication: Affective disorder
     Dosage: 50 MILLIGRAM, QD (50MG DAILY START DATE: MAY-2005)
     Route: 065
     Dates: start: 200505
  37. AMISULPRIDE [Suspect]
     Active Substance: AMISULPRIDE
     Indication: Affective disorder
     Dosage: 50 MILLIGRAM, BID (50MG TWICE DAILY START DATE:-2013)
     Route: 065
     Dates: start: 2013
  38. AMISULPRIDE [Suspect]
     Active Substance: AMISULPRIDE
     Indication: Affective disorder
     Dosage: 50 MILLIGRAM, BID (50MG TWICE DAILY START DATE: JUL-2014)
     Route: 065
  39. AMISULPRIDE [Suspect]
     Active Substance: AMISULPRIDE
     Indication: Affective disorder
     Dosage: 200MG TWICE DAILY, 600MG AT NIGHT START DATE: MAY-2016
     Route: 065
     Dates: start: 201605
  40. AMISULPRIDE [Suspect]
     Active Substance: AMISULPRIDE
     Indication: Affective disorder
     Dosage: 200 MILLIGRAM, BID (200MG TWICE DAILY START DATE: SEP-2015)
     Route: 065
     Dates: start: 201509
  41. AMISULPRIDE [Suspect]
     Active Substance: AMISULPRIDE
     Indication: Affective disorder
     Dosage: 100MG IN THE MORNING, 400MG AT NIGHT START DATE: JUL-2016
     Route: 065
     Dates: start: 201607
  42. AMISULPRIDE [Suspect]
     Active Substance: AMISULPRIDE
     Indication: Affective disorder
     Dosage: 200MG IN THE MORNING, 600MG AT NIGHT START DATE: JUN-2016
     Route: 065
     Dates: start: 201606
  43. CITALOPRAM [Suspect]
     Active Substance: CITALOPRAM
     Indication: Depressed mood
     Dosage: START DATE: MAY-2005
     Route: 065
     Dates: start: 200407
  44. CITALOPRAM [Suspect]
     Active Substance: CITALOPRAM
     Indication: Depressed mood
     Dosage: START DATE: NOV-2003
     Route: 065
     Dates: start: 200505
  45. CITALOPRAM [Suspect]
     Active Substance: CITALOPRAM
     Indication: Depressed mood
     Route: 065
     Dates: start: 201407, end: 201503
  46. CITALOPRAM [Suspect]
     Active Substance: CITALOPRAM
     Indication: Depressed mood
     Dosage: (START DATE: JUL-2004)
     Route: 065
     Dates: start: 200301
  47. CITALOPRAM [Suspect]
     Active Substance: CITALOPRAM
     Indication: Depressed mood
     Dosage: UNK (START DATE: 2013)
     Route: 065
  48. CITALOPRAM [Suspect]
     Active Substance: CITALOPRAM
     Indication: Depressed mood
     Dosage: START DATE: JAN-2003
     Route: 065
     Dates: start: 200311
  49. CITALOPRAM [Suspect]
     Active Substance: CITALOPRAM
     Indication: Depressed mood
     Dosage: 20 MILLIGRAM, QD (20MG DAILY START DATE: JUL-2004)
     Route: 065
  50. CITALOPRAM [Suspect]
     Active Substance: CITALOPRAM
     Indication: Depressed mood
     Dosage: UNK (START DATE: 2013)
     Route: 065
  51. CITALOPRAM [Suspect]
     Active Substance: CITALOPRAM
     Indication: Depressed mood
     Dosage: 20 MG, QD
     Route: 065
     Dates: start: 200301
  52. CITALOPRAM [Suspect]
     Active Substance: CITALOPRAM
     Indication: Depressed mood
     Dosage: 20 MILLIGRAM, QD (20MG DAILY START DATE: NOV-2004)
     Route: 065
  53. CITALOPRAM [Suspect]
     Active Substance: CITALOPRAM
     Indication: Depressed mood
     Dosage: 20 MILLIGRAM, QD (20MG DAILY START DATE: MAY-2005)
     Route: 065
     Dates: start: 200407
  54. CITALOPRAM [Suspect]
     Active Substance: CITALOPRAM
     Indication: Depressed mood
     Dosage: 20 MILLIGRAM, QD (20MG DAILY START DATE: NOV-2003)
     Route: 065
     Dates: start: 200311
  55. CITALOPRAM [Suspect]
     Active Substance: CITALOPRAM
     Indication: Depressed mood
     Dosage: 20 MILLIGRAM, QD (20MG DAILY START DATE: JAN-2003)
     Route: 065
     Dates: start: 2013
  56. CARIPRAZINE [Suspect]
     Active Substance: CARIPRAZINE
     Indication: Product used for unknown indication
     Dosage: 6 MILLIGRAM, QD (6MG DAILY START DATE: DEC-2022)
     Route: 065
     Dates: start: 202212, end: 202303
  57. CARIPRAZINE [Suspect]
     Active Substance: CARIPRAZINE
     Indication: Product used for unknown indication
     Dosage: 6 MILLIGRAM, QD (6MG DAILY START DATE: MAR-2023)
     Route: 065
     Dates: start: 202303, end: 202305
  58. CARIPRAZINE [Suspect]
     Active Substance: CARIPRAZINE
     Indication: Product used for unknown indication
     Dosage: 3 MILLIGRAM, QD (3MG DAILY START DATE: AUG-2022)
     Route: 065
     Dates: start: 202208
  59. CLOZARIL [Suspect]
     Active Substance: CLOZAPINE
     Indication: Schizophrenia
     Dosage: UNK
     Route: 048
     Dates: start: 20230720
  60. CLOZARIL [Suspect]
     Active Substance: CLOZAPINE
     Indication: Schizophrenia
     Dosage: DOSAGE TEXT: 200MG IN THE MORNING, 300MG AT NIGHT )THERAPY END DATE: NOT ASKED
     Route: 065
     Dates: start: 201605
  61. CLOZARIL [Suspect]
     Active Substance: CLOZAPINE
     Indication: Schizophrenia
     Dosage: 200MG IN THE MORNING, 300MG AT NIGHT
     Route: 065
     Dates: start: 201611
  62. CLOZARIL [Suspect]
     Active Substance: CLOZAPINE
     Indication: Schizophrenia
     Dosage: DOSAGE TEXT: 200MG IN THE MORNING, 300MG AT NIGHT, THERAPY END DATE: NOT ASKED
     Route: 065
     Dates: start: 201606
  63. CLOZARIL [Suspect]
     Active Substance: CLOZAPINE
     Indication: Schizophrenia
     Dosage: 100MG IN THE MORNING, 400MG IN THE EVENING
     Route: 065
     Dates: start: 200411
  64. CLOZARIL [Suspect]
     Active Substance: CLOZAPINE
     Indication: Schizophrenia
     Dosage: 100MG IN THE MORNING, 400MG IN THE EVENING
     Route: 065
     Dates: start: 200311
  65. CLOZARIL [Suspect]
     Active Substance: CLOZAPINE
     Indication: Schizophrenia
     Dosage: DOSAGE TEXT: 50MG IN THE MORNING, 250MG IN THE EVENING,THERAPY END DATE: NOT ASKED
     Route: 065
     Dates: start: 201509
  66. CLOZARIL [Suspect]
     Active Substance: CLOZAPINE
     Indication: Schizophrenia
     Dosage: DOSAGE TEXT: 250 MILLIGRAM, QD (250MG IN THE EVENING,THERAPY END DATE: NOT ASKED
     Route: 065
     Dates: start: 200909
  67. CLOZARIL [Suspect]
     Active Substance: CLOZAPINE
     Indication: Schizophrenia
     Dosage: 350 MILLIGRAM, QD (350MG IN THE EVENING)
     Route: 065
     Dates: start: 200605
  68. CLOZARIL [Suspect]
     Active Substance: CLOZAPINE
     Indication: Schizophrenia
     Dosage: DOSAGE TEXT: 200 MILLIGRAM, QD (200MG IN THE EVENING)
     Route: 065
     Dates: start: 201012, end: 201201
  69. CLOZARIL [Suspect]
     Active Substance: CLOZAPINE
     Indication: Schizophrenia
     Dosage: DOSAGE TEXT: 500 MILLIGRAM, QD (500MG DAILY)THERAPY END DATE: NOT ASKED
     Route: 065
     Dates: start: 2013
  70. CLOZARIL [Suspect]
     Active Substance: CLOZAPINE
     Indication: Schizophrenia
     Dosage: 100MG IN THE MORNING, 400MG IN THE EVENING
     Route: 065
     Dates: start: 200511
  71. CLOZARIL [Suspect]
     Active Substance: CLOZAPINE
     Indication: Schizophrenia
     Dosage: DOSAGE TEXT: 200MG IN THE MORNING, 300MG AT NIGHT,THERAPY END DATE: NOT ASKED
     Route: 065
     Dates: start: 201607
  72. CLOZARIL [Suspect]
     Active Substance: CLOZAPINE
     Indication: Schizophrenia
     Dosage: 50MG IN THE MORNING, 250MG IN THE EVENING
     Route: 065
     Dates: start: 201509
  73. CLOZARIL [Suspect]
     Active Substance: CLOZAPINE
     Indication: Schizophrenia
     Dosage: 100MG IN THE MORNING, 400MG IN THE EVENING
     Route: 065
     Dates: start: 200411
  74. CLOZARIL [Suspect]
     Active Substance: CLOZAPINE
     Indication: Schizophrenia
     Dosage: DOSAGE TEXT: 400 MILLIGRAM, QD (400MG AT NIGHT) THERAPY END DATE: NOT ASKED
     Route: 065
     Dates: start: 201701
  75. CLOZARIL [Suspect]
     Active Substance: CLOZAPINE
     Indication: Schizophrenia
     Dosage: IN THE EVENING,
     Route: 065
     Dates: start: 200806
  76. CLOZARIL [Suspect]
     Active Substance: CLOZAPINE
     Indication: Schizophrenia
     Dosage: 100MG IN THE MORNING, 400MG IN THE EVENING
     Route: 065
     Dates: start: 200407
  77. CLOZARIL [Suspect]
     Active Substance: CLOZAPINE
     Indication: Schizophrenia
     Dosage: DOSAGE TEXT: 100MG IN THE MORNING, 300MG AT NIGHT
     Route: 065
     Dates: start: 201407, end: 201503
  78. CLOZARIL [Suspect]
     Active Substance: CLOZAPINE
     Indication: Schizophrenia
     Dosage: 375 MILLIGRAM, QD (375MG IN THE EVENING),
     Route: 065
     Dates: start: 200605
  79. CLOZARIL [Suspect]
     Active Substance: CLOZAPINE
     Indication: Schizophrenia
     Dosage: DOSAGE TEXT: 275 MILLIGRAM, QD (275MG IN THE EVENING),THERAPY END DATE: NOT ASKED
     Route: 065
     Dates: start: 200811
  80. CLOZARIL [Suspect]
     Active Substance: CLOZAPINE
     Indication: Schizophrenia
     Dosage: 200MG IN THE MORNING, 300MG AT NIGHT
     Route: 065
     Dates: start: 201606
  81. CLOZARIL [Suspect]
     Active Substance: CLOZAPINE
     Indication: Schizophrenia
     Dosage: 100MG IN THE MORNING, 400MG IN THE EVENING
     Route: 065
     Dates: start: 200301
  82. CLOZARIL [Suspect]
     Active Substance: CLOZAPINE
     Indication: Schizophrenia
     Dosage: 100MG IN THE MORNING, 400MG IN THE EVENING
     Route: 065
     Dates: start: 200407
  83. CLOZARIL [Suspect]
     Active Substance: CLOZAPINE
     Indication: Schizophrenia
     Dosage: 100MG IN THE MORNING, 300MG AT NIGHT
     Route: 065
     Dates: start: 201407, end: 201503
  84. CLOZARIL [Suspect]
     Active Substance: CLOZAPINE
     Indication: Schizophrenia
     Dosage: 100MG IN THE MORNING, 400MG IN THE EVENING
     Route: 065
     Dates: start: 200505
  85. CLOZARIL [Suspect]
     Active Substance: CLOZAPINE
     Indication: Schizophrenia
     Dosage: DOSAGE TEXT: 450 MILLIGRAM, QD (450MG AT NIGHT) THERAPY END DATE: NOT ASKED
     Route: 065
     Dates: start: 2019
  86. CLOZARIL [Suspect]
     Active Substance: CLOZAPINE
     Indication: Schizophrenia
     Dosage: 200MG IN THE MORNING, 300MG AT NIGHT
     Route: 065
     Dates: start: 201605
  87. CLOZARIL [Suspect]
     Active Substance: CLOZAPINE
     Indication: Schizophrenia
     Dosage: 100MG IN THE MORNING, 400MG IN THE EVENING,
     Route: 065
     Dates: start: 200511
  88. CLOZARIL [Suspect]
     Active Substance: CLOZAPINE
     Indication: Schizophrenia
     Dosage: 200MG IN THE MORNING, 300MG AT NIGHT
     Route: 065
     Dates: start: 201607
  89. CLOZARIL [Suspect]
     Active Substance: CLOZAPINE
     Indication: Schizophrenia
     Dosage: DOSAGE TEXT: UNK THERAPY END DATE: NOT ASKED
     Route: 048
     Dates: start: 20230720
  90. CLOZARIL [Suspect]
     Active Substance: CLOZAPINE
     Indication: Schizophrenia
     Dosage: DOSAGE TEXT: 225 MILLIGRAM, QD (225MG IN THE EVENING,THERAPY END DATE: NOT ASKED
     Route: 065
     Dates: start: 201008
  91. CLOZARIL [Suspect]
     Active Substance: CLOZAPINE
     Indication: Schizophrenia
     Dosage: 100MG IN THE MORNING, 400MG IN THE EVENING
     Route: 065
     Dates: start: 200505
  92. CLOZARIL [Suspect]
     Active Substance: CLOZAPINE
     Indication: Schizophrenia
     Dosage: DOSAGE TEXT: 200MG IN THE MORNING, 300MG AT NIGHT,THERAPY END DATE: NOT ASKED
     Route: 065
     Dates: start: 201611
  93. CLOZARIL [Suspect]
     Active Substance: CLOZAPINE
     Indication: Schizophrenia
     Dosage: DOSAGE TEXT: 225 MILLIGRAM, BID (225MG TWICE DAILY)
     Route: 065
     Dates: start: 201910, end: 20220112
  94. CLOZARIL [Suspect]
     Active Substance: CLOZAPINE
     Indication: Schizophrenia
     Dosage: 100MG IN THE MORNING, 400MG IN THE EVENING
     Route: 065
     Dates: start: 200307
  95. CLOZARIL [Suspect]
     Active Substance: CLOZAPINE
     Indication: Schizophrenia
     Dosage: 100MG IN THE MORNING, 400MG IN THE EVENING
     Route: 065
     Dates: start: 200301
  96. RISPERDAL [Suspect]
     Active Substance: RISPERIDONE
     Indication: Product used for unknown indication
     Dosage: UNK (START DATE: FEB-2013)
     Route: 065
     Dates: start: 201302
  97. RISPERDAL [Suspect]
     Active Substance: RISPERIDONE
     Indication: Product used for unknown indication
     Dosage: UNK
     Route: 065
     Dates: start: 200210
  98. RISPERDAL [Suspect]
     Active Substance: RISPERIDONE
     Indication: Product used for unknown indication
     Dosage: UNK
     Route: 065
     Dates: start: 201302
  99. FERROUS SULFATE [Suspect]
     Active Substance: FERROUS SULFATE
     Indication: Product used for unknown indication
     Dosage: UNK
     Route: 065
  100. FLUPENTIXOL DECANOATE [Suspect]
     Active Substance: FLUPENTIXOL DECANOATE
     Indication: Product used for unknown indication
     Dosage: 200 MILLIGRAM, QW (200MG WEEKLY START DATE:MAR-2023)
     Route: 065
     Dates: start: 202303, end: 202305
  101. FLUPENTIXOL DECANOATE [Suspect]
     Active Substance: FLUPENTIXOL DECANOATE
     Indication: Product used for unknown indication
     Dosage: 400 MILLIGRAM, QW (400MG WEEKLY START DATE: AUG-2022)
     Route: 065
     Dates: start: 202208
  102. FLUPENTIXOL DECANOATE [Suspect]
     Active Substance: FLUPENTIXOL DECANOATE
     Indication: Product used for unknown indication
     Dosage: 200 MILLIGRAM, QW (200MG WEEKLY START DATE: DEC-2022)
     Route: 065
     Dates: start: 202212, end: 202303
  103. VITAMIN B [Concomitant]
     Active Substance: VITAMIN B
     Indication: Product used for unknown indication
  104. FERROUS SULFATE\FOLIC ACID [Suspect]
     Active Substance: FERROUS SULFATE\FOLIC ACID
     Indication: Product used for unknown indication
     Dosage: UNK
     Route: 065
  105. ENSURE COMPACT [Concomitant]
     Indication: Product used for unknown indication

REACTIONS (34)
  - Dystonia [Unknown]
  - Hallucination, auditory [Not Recovered/Not Resolved]
  - Drug ineffective [Unknown]
  - COVID-19 [Unknown]
  - Mental impairment [Unknown]
  - Treatment noncompliance [Unknown]
  - Cardiac arrest [Unknown]
  - Accidental exposure to product [Unknown]
  - Thinking abnormal [Not Recovered/Not Resolved]
  - Weight decreased [Unknown]
  - Eating disorder [Unknown]
  - Insomnia [Unknown]
  - Withdrawal syndrome [Unknown]
  - Strabismus [Unknown]
  - Slow speech [Unknown]
  - Orthostatic hypotension [Unknown]
  - Acne [Unknown]
  - Vitamin D decreased [Unknown]
  - Red blood cell sedimentation rate decreased [Unknown]
  - Psoriasis [Unknown]
  - Depressed mood [Unknown]
  - Sedation [Unknown]
  - Suicidal ideation [Unknown]
  - Neutrophil count decreased [Not Recovered/Not Resolved]
  - Lymphocyte count decreased [Unknown]
  - Blood prolactin increased [Unknown]
  - Drug ineffective [Unknown]
  - Off label use [Unknown]
  - Overdose [Unknown]
  - Delusion [Not Recovered/Not Resolved]
  - Delusion of grandeur [Unknown]
  - Neglect of personal appearance [Unknown]
  - Pneumonia aspiration [Unknown]
  - Aggression [Unknown]

NARRATIVE: CASE EVENT DATE: 20021001
